FAERS Safety Report 8574299-4 (Version None)
Quarter: 2012Q3

REPORT INFORMATION
  Report Type: 
  Country: None (occurrence: None)
  Receive Date: 20120806
  Receipt Date: 20120724
  Transmission Date: 20120928
  Serious: No
  Sender: FDA-Public Use
  Company Number: US-ASTRAZENECA-2012SE52508

PATIENT
  Age: 56 Year
  Sex: Female

DRUGS (19)
  1. ASPIRIN [Concomitant]
     Route: 048
  2. ALBUTEROL SULFATE [Concomitant]
     Indication: DYSPNOEA
     Dosage: 2.5MG/3ML, 0.083 PERCENT NEBULIZED SOLN 1 INHALATION EVERY 4-6 HRS AS NEEDED
     Route: 055
  3. FLONASE [Concomitant]
     Dosage: 50 MCG/ACT 1 NASAL TWO TIMES DAILY INTO EACH NOSTRIL
     Route: 045
  4. ALBUTEROL SULFATE [Concomitant]
     Indication: WHEEZING
     Dosage: 2.5MG/3ML, 0.083 PERCENT NEBULIZED SOLN 1 INHALATION EVERY 4-6 HRS AS NEEDED
     Route: 055
  5. VENTOLIN HFA [Concomitant]
     Indication: DYSPNOEA
     Dosage: 108 (90 BASE) MCG/ACT, 2 INHALATION TWO TIMES DAILY EVERY 4-6 HRS, AS NEEDED
     Route: 055
  6. CALCIUM/D [Concomitant]
     Dosage: 600-200 MG, 1 TABLET TWO TIMES DAILY
     Route: 048
  7. METOPROLOL TARTRATE [Concomitant]
     Route: 048
  8. HYDROCODONE BITARTRATE + ACETAMINOPHEN [Concomitant]
     Indication: PAIN IN EXTREMITY
     Dosage: 5/500 MG, 1 ORAL TWO TIMES DAILY, AS NEEDED
     Route: 048
  9. OSTEO BI [Concomitant]
     Dosage: 2 TABLET BY MOUTH DAILY
     Route: 048
  10. MELOXICAM [Concomitant]
     Route: 048
  11. FLEXERIL [Concomitant]
     Indication: ARTHRALGIA
     Dosage: 10 MG, ONE HALF TABLET TWO TIMES DAILY, AS NEEDED
     Route: 048
  12. SYMBICORT [Suspect]
     Dosage: 160/4.5 MCG/ACT, TWO INHALATION, TWO TIMES DAILY
     Route: 055
  13. FLEXERIL [Concomitant]
     Indication: MUSCLE SPASMS
     Dosage: 10 MG, ONE HALF TABLET TWO TIMES DAILY, AS NEEDED
     Route: 048
  14. ULTRAM [Concomitant]
     Indication: ARTHRALGIA
     Dosage: 50 MG, 1 TABLET THREE TIMES DAILY, AS NEEDED
     Route: 048
  15. FLUOXETINE HYDROCHLORIDE [Concomitant]
     Route: 048
  16. RANITIDINE HCL [Concomitant]
     Route: 048
  17. PREDNISONE [Concomitant]
     Dosage: 10 MG 1 TABLET AS DIRECTED
     Route: 048
  18. AMITRIPTYLINE HCL [Concomitant]
     Dosage: 25 MG, ONE HALF TABLET AT BED TIME
     Route: 048
  19. CETIRIZINE HCL [Concomitant]
     Route: 048

REACTIONS (5)
  - FIBROMYALGIA [None]
  - FATIGUE [None]
  - ARTHRALGIA [None]
  - UPPER RESPIRATORY TRACT INFECTION [None]
  - CHRONIC OBSTRUCTIVE PULMONARY DISEASE [None]
